FAERS Safety Report 4905633-1 (Version None)
Quarter: 2006Q1

REPORT INFORMATION
  Report Type: 
  Country: None (occurrence: None)
  Receive Date: 20060203
  Receipt Date: 20060118
  Transmission Date: 20060701
  Serious: Yes (Hospitalization, Other)
  Sender: FDA-Public Use
  Company Number: TRP_0649_2005

PATIENT
  Age: 52 Year
  Sex: Female
  Weight: 61.6892 kg

DRUGS (9)
  1. RIBASPHERE [Suspect]
     Indication: HEPATITIS C
     Dosage: 1000 MG QDAY PO
     Route: 048
     Dates: start: 20050921
  2. PEG-INTRON [Suspect]
     Indication: HEPATITIS C
     Dosage: 120 MCG QWK SC
     Route: 058
     Dates: start: 20050921, end: 20051017
  3. PEG-INTRON [Suspect]
     Indication: HEPATITIS C
     Dosage: 80 MCG QWK SC
     Route: 058
     Dates: start: 20051017
  4. CRESTOR [Concomitant]
  5. SYNTHROID [Concomitant]
  6. FOSAMAX [Concomitant]
  7. ZYRTEC [Concomitant]
  8. LISINOPRIL W/HYDROCHLOROTHIAZIDE [Concomitant]
  9. LISINOPRIL/HYDROCHOROTHIAZIDE [Concomitant]

REACTIONS (6)
  - BLOOD PRESSURE DECREASED [None]
  - COLLAPSE OF LUNG [None]
  - DEHYDRATION [None]
  - NAUSEA [None]
  - PNEUMONIA [None]
  - VOMITING [None]
